FAERS Safety Report 5492904-6 (Version None)
Quarter: 2007Q4

REPORT INFORMATION
  Report Type: 
  Country: None (occurrence: None)
  Receive Date: 20071023
  Receipt Date: 20071010
  Transmission Date: 20080405
  Serious: Yes (Hospitalization)
  Sender: FDA-Public Use
  Company Number: US-AVENTIS-200716522US

PATIENT
  Sex: Male
  Weight: 126.36 kg

DRUGS (6)
  1. LANTUS [Suspect]
     Dosage: DOSE: UNK
     Dates: start: 20060101
  2. LANTUS [Suspect]
     Dosage: DOSE: ^100-70-100^ MAXIMUM PER DAY
  3. LANTUS [Suspect]
     Dosage: DOSE: UNK
     Dates: start: 20060101
  4. LANTUS [Suspect]
     Dosage: DOSE: ^100-70-100^ MAXIMUM PER DAY
  5. APIDRA [Suspect]
     Dosage: DOSE: 60 TID (UP TO A MAXIMUM OF 165 UNITS PER DAY)
     Dates: start: 20060101
  6. APIDRA [Suspect]
     Dosage: DOSE: 60 TID (UP TO A MAXIMUM OF 165 UNITS PER DAY)
     Dates: start: 20060101

REACTIONS (3)
  - ANTI-INSULIN ANTIBODY POSITIVE [None]
  - INSULIN RESISTANCE [None]
  - LABORATORY TEST ABNORMAL [None]
